FAERS Safety Report 9685611 (Version 1)
Quarter: 2013Q4

REPORT INFORMATION
  Report Type: Spontaneous
  Country: US (occurrence: US)
  Receive Date: 20131113
  Receipt Date: 20131113
  Transmission Date: 20140711
  Serious: No
  Sender: FDA-Public Use
  Company Number: US-GLAXOSMITHKLINE-A1002512A

PATIENT
  Age: 86 Year
  Sex: Male

DRUGS (3)
  1. COREG [Suspect]
     Indication: EJECTION FRACTION DECREASED
     Dosage: 1TAB TWICE PER DAY
     Route: 048
     Dates: start: 20121108
  2. LISINOPRIL [Concomitant]
  3. SPIRONOLACTONE [Concomitant]

REACTIONS (2)
  - Diarrhoea [Not Recovered/Not Resolved]
  - Blood pressure decreased [Unknown]
